FAERS Safety Report 16945306 (Version 4)
Quarter: 2022Q1

REPORT INFORMATION
  Report Type: Spontaneous
  Country: JP (occurrence: JP)
  Receive Date: 20191022
  Receipt Date: 20220131
  Transmission Date: 20220424
  Serious: Yes (Other)
  Sender: FDA-Public Use
  Company Number: JP-BRISTOL-MYERS SQUIBB COMPANY-BMS-2019-100321

PATIENT
  Age: 86 Year
  Sex: Male

DRUGS (2)
  1. EMPLICITI [Suspect]
     Active Substance: ELOTUZUMAB
     Indication: Plasma cell myeloma
     Dosage: 700 MILLIGRAM/KILOGRAM, QWK, ADMINISTRATION DAYS: 50 DAYS
     Route: 041
     Dates: start: 20190810, end: 20190928
  2. LENALIDOMIDE [Suspect]
     Active Substance: LENALIDOMIDE
     Indication: Product used for unknown indication
     Dosage: UNK UNK, QD
     Route: 048
     Dates: end: 20190927

REACTIONS (1)
  - Interstitial lung disease [Recovered/Resolved]
